FAERS Safety Report 7107178-X (Version None)
Quarter: 2010Q4

REPORT INFORMATION
  Report Type: 
  Country: None (occurrence: None)
  Receive Date: 20101116
  Receipt Date: 20101018
  Transmission Date: 20110411
  Serious: No
  Sender: FDA-Public Use
  Company Number: US-ABBOTT-10P-163-0678858-00

PATIENT
  Sex: Female

DRUGS (1)
  1. SIMCOR [Suspect]
     Indication: BLOOD TRIGLYCERIDES INCREASED
     Dosage: 500/40MG ONCE DAILY
     Dates: start: 20101001, end: 20101001

REACTIONS (3)
  - DRY MOUTH [None]
  - OCULAR ICTERUS [None]
  - URINE OUTPUT DECREASED [None]
